FAERS Safety Report 8490194-3 (Version None)
Quarter: 2012Q3

REPORT INFORMATION
  Report Type: 
  Country: None (occurrence: None)
  Receive Date: 20120705
  Receipt Date: 20110715
  Transmission Date: 20120928
  Serious: No
  Sender: FDA-Public Use
  Company Number: US-BAUSCH-2011BL005085

PATIENT
  Age: 38 Year
  Sex: Male

DRUGS (1)
  1. OPCON-A [Suspect]
     Indication: EYE ALLERGY
     Route: 047
     Dates: start: 20110615, end: 20110715

REACTIONS (1)
  - MYDRIASIS [None]
